FAERS Safety Report 8488049-3 (Version None)
Quarter: 2012Q3

REPORT INFORMATION
  Report Type: 
  Country: None (occurrence: None)
  Receive Date: 20120705
  Receipt Date: 20120626
  Transmission Date: 20120928
  Serious: Yes (Other)
  Sender: FDA-Public Use
  Company Number: AU-BRISTOL-MYERS SQUIBB COMPANY-16712960

PATIENT
  Age: 39 Year
  Sex: Female

DRUGS (8)
  1. FOLIC ACID [Concomitant]
  2. METHOTREXATE [Concomitant]
  3. MICARDIS HCT [Concomitant]
  4. ORENCIA [Suspect]
     Indication: RHEUMATOID ARTHRITIS
     Route: 042
     Dates: start: 20120301
  5. MOBIC [Concomitant]
  6. VALTREX [Concomitant]
  7. OMEPRAZOLE (PRISOLEC) [Concomitant]
  8. PERINDOPRIL ERBUMINE [Concomitant]

REACTIONS (1)
  - RENAL IMPAIRMENT [None]
